FAERS Safety Report 26077758 (Version 1)
Quarter: 2025Q4

REPORT INFORMATION
  Report Type: Spontaneous
  Country: US (occurrence: US)
  Receive Date: 20251122
  Receipt Date: 20251122
  Transmission Date: 20260118
  Serious: No
  Sender: MDD OPERATIONS
  Company Number: US-MDD US Operations-MDD202509-003454

PATIENT
  Age: 73 Year
  Sex: Male

DRUGS (5)
  1. ONAPGO [Suspect]
     Active Substance: APOMORPHINE HYDROCHLORIDE
     Indication: Parkinson^s disease
     Dosage: 1.5MG PER HOUR
     Dates: start: 20250821
  2. ONAPGO [Suspect]
     Active Substance: APOMORPHINE HYDROCHLORIDE
     Dosage: 2MG PER HOUR
     Dates: start: 20250821
  3. ONAPGO [Suspect]
     Active Substance: APOMORPHINE HYDROCHLORIDE
     Dosage: 1.5MG PER HOUR
     Dates: start: 20250821
  4. ONAPGO [Suspect]
     Active Substance: APOMORPHINE HYDROCHLORIDE
     Dosage: 2MG
  5. ONAPGO [Suspect]
     Active Substance: APOMORPHINE HYDROCHLORIDE
     Dosage: 24-HOUR CONTINUOUS INFUSION

REACTIONS (6)
  - Drooling [Unknown]
  - Snoring [Unknown]
  - Pallor [Unknown]
  - Hypertension [Unknown]
  - Somnolence [Unknown]
  - Hypotension [Unknown]
